FAERS Safety Report 4396608-2 (Version None)
Quarter: 2004Q3

REPORT INFORMATION
  Report Type: 
  Country: None (occurrence: None)
  Receive Date: 20040713
  Receipt Date: 20040713
  Transmission Date: 20050211
  Serious: Yes (Other)
  Sender: FDA-Public Use
  Company Number: None

PATIENT
  Age: 6 Year
  Sex: Male
  Weight: 19.0511 kg

DRUGS (2)
  1. FLUOXETINE [Suspect]
     Indication: ATTENTION DEFICIT/HYPERACTIVITY DISORDER
     Dosage: 1.25 ML DAY ORAL
     Route: 048
     Dates: start: 20040421, end: 20040712
  2. RISPERIDONE [Concomitant]

REACTIONS (1)
  - MEDICATION ERROR [None]
